FAERS Safety Report 7607928-X (Version None)
Quarter: 2011Q3

REPORT INFORMATION
  Report Type: 
  Country: None (occurrence: None)
  Receive Date: 20110714
  Receipt Date: 20091030
  Transmission Date: 20111222
  Serious: Yes (Other)
  Sender: FDA-Public Use
  Company Number: US-BAYER-200937673NA

PATIENT
  Age: 47 Year
  Sex: Male
  Weight: 86 kg

DRUGS (7)
  1. TRASYLOL [Suspect]
     Indication: PRODUCT USED FOR UNKNOWN INDICATION
     Dosage: LOADING DOSE - 1,000,000 ML AND 0.25 DRIP
     Route: 042
     Dates: start: 20060606, end: 20060606
  2. FENTANYL [Concomitant]
     Dosage: UNK
     Route: 042
     Dates: start: 20060606
  3. INSULIN [Concomitant]
     Dosage: 10 UNITS
     Route: 042
     Dates: start: 20060606
  4. ALBUMIN (HUMAN) [Concomitant]
     Dosage: UNK
     Route: 042
     Dates: start: 20060606
  5. PROTAMINE SULFATE [Concomitant]
     Dosage: 250MG/ONCE/PUMP
     Route: 042
     Dates: start: 20060606, end: 20060606
  6. HEPARIN [Concomitant]
     Dosage: 27,000/VARIED/PUMP
     Route: 042
     Dates: start: 20060606, end: 20060606
  7. INSULIN [Concomitant]
     Dosage: 10 UNITS/ONCE

REACTIONS (9)
  - ANXIETY [None]
  - PAIN [None]
  - EMOTIONAL DISTRESS [None]
  - CEREBROVASCULAR ACCIDENT [None]
  - FEAR [None]
  - INJURY [None]
  - ANHEDONIA [None]
  - UNEVALUABLE EVENT [None]
  - STRESS [None]
